FAERS Safety Report 25882953 (Version 3)
Quarter: 2025Q4

REPORT INFORMATION
  Report Type: Spontaneous
  Country: US (occurrence: US)
  Receive Date: 20251006
  Receipt Date: 20251015
  Transmission Date: 20260118
  Serious: No
  Sender: BIOGEN
  Company Number: US-BIOGEN-2025BI01325708

PATIENT
  Age: 32 Year
  Sex: Female

DRUGS (5)
  1. ZURZUVAE [Suspect]
     Active Substance: ZURANOLONE
     Indication: Perinatal depression
     Route: 050
     Dates: start: 20250930, end: 20251007
  2. AMOXICILLIN [Concomitant]
     Active Substance: AMOXICILLIN
     Indication: Sinusitis
     Route: 050
  3. ZINC [Concomitant]
     Active Substance: ZINC
     Indication: Sinusitis
     Route: 050
  4. DEXTROMETHORPHAN [Concomitant]
     Active Substance: DEXTROMETHORPHAN
     Indication: Sinusitis
     Route: 050
  5. GUAIFENESIN [Concomitant]
     Active Substance: GUAIFENESIN
     Indication: Sinusitis
     Route: 050

REACTIONS (7)
  - Paraesthesia [Unknown]
  - Cognitive disorder [Unknown]
  - Vomiting [Unknown]
  - Reflexes abnormal [Unknown]
  - Prescribed underdose [Unknown]
  - Dizziness [Unknown]
  - Somnolence [Unknown]

NARRATIVE: CASE EVENT DATE: 20250930
